FAERS Safety Report 9629849 (Version 1)
Quarter: 2013Q4

REPORT INFORMATION
  Report Type: Report from Study
  Country: ES (occurrence: ES)
  Receive Date: 20131017
  Receipt Date: 20131017
  Transmission Date: 20140711
  Serious: Yes (Hospitalization)
  Sender: FDA-Public Use
  Company Number: ES-BAYER-2013-125187

PATIENT
  Age: 81 Year
  Sex: Male

DRUGS (1)
  1. REGORAFENIB [Suspect]
     Indication: GASTROINTESTINAL STROMAL TUMOUR
     Dosage: DAILY DOSE: 160 MG
     Route: 048

REACTIONS (3)
  - Renal failure acute [None]
  - Platelet count decreased [None]
  - Cardiac failure congestive [None]
